FAERS Safety Report 9350351 (Version 1)
Quarter: 2013Q2

REPORT INFORMATION
  Report Type: Spontaneous
  Country: CA (occurrence: CA)
  Receive Date: 20130617
  Receipt Date: 20130617
  Transmission Date: 20140414
  Serious: Yes (Hospitalization, Other)
  Sender: FDA-Public Use
  Company Number: CA-JNJFOC-20130602262

PATIENT
  Sex: Female

DRUGS (3)
  1. LEVAQUIN [Suspect]
     Indication: PRODUCT USED FOR UNKNOWN INDICATION
     Route: 065
     Dates: start: 20130509
  2. PREDNISONE [Suspect]
     Indication: BLISTER
     Route: 065
     Dates: start: 201305
  3. PREDNISONE [Suspect]
     Indication: RASH
     Route: 065
     Dates: start: 201305

REACTIONS (3)
  - Rash [Unknown]
  - Blister [Unknown]
  - Blood glucose increased [Unknown]
